FAERS Safety Report 23350668 (Version 1)
Quarter: 2023Q4

REPORT INFORMATION
  Report Type: Spontaneous
  Country: AR (occurrence: AR)
  Receive Date: 20231229
  Receipt Date: 20231229
  Transmission Date: 20240109
  Serious: Yes (Other)
  Sender: FDA-Public Use
  Company Number: AR-PFIZER INC-PV202300205379

PATIENT
  Age: 75 Year
  Sex: Female

DRUGS (2)
  1. IBRANCE [Suspect]
     Active Substance: PALBOCICLIB
     Indication: Breast cancer metastatic
     Dosage: 125 MG, CYCLIC (SCHEME 21 DAYS OF INTAKE AND 10 DAYS OF REST)
     Dates: start: 20200621
  2. FULVESTRANT [Concomitant]
     Active Substance: FULVESTRANT

REACTIONS (5)
  - Diabetes mellitus [Not Recovered/Not Resolved]
  - Tooth loss [Not Recovered/Not Resolved]
  - Palate injury [Not Recovered/Not Resolved]
  - Toothache [Not Recovered/Not Resolved]
  - Hypersensitivity [Not Recovered/Not Resolved]
